FAERS Safety Report 7613111-4 (Version None)
Quarter: 2011Q3

REPORT INFORMATION
  Report Type: 
  Country: None (occurrence: None)
  Receive Date: 20110713
  Receipt Date: 20110520
  Transmission Date: 20111222
  Serious: No
  Sender: FDA-Public Use
  Company Number: US-005428

PATIENT
  Sex: Male
  Weight: 91.9895 kg

DRUGS (19)
  1. NITROGLYCERIN [Concomitant]
  2. SAW PALMETTO /00833501/ [Concomitant]
  3. FISH OIL [Concomitant]
  4. FUROSEMIDE [Concomitant]
  5. GEMFIBROZIL [Concomitant]
  6. LYRICA [Concomitant]
  7. NAPROXEN (ALEVE) [Concomitant]
  8. PULMICORT [Concomitant]
  9. PROVENTIL HFA /00139502/ [Concomitant]
  10. TELMISARTAN [Concomitant]
  11. COREG [Concomitant]
  12. POTASSIUM CHLORIDE [Concomitant]
  13. MULTI-VITAMINS [Concomitant]
  14. ROZEREM [Concomitant]
  15. VITAMIN A [Concomitant]
  16. ASPIRIN [Concomitant]
  17. DEGARELIX 240 MG [Suspect]
     Indication: PROSTATE CANCER
     Dosage: (240 MG 1X SUBCUTANEOUS)
     Route: 058
     Dates: start: 20110518
  18. MICARDIS [Concomitant]
  19. ADVAIR DISKUS 100/50 [Concomitant]

REACTIONS (5)
  - ABDOMINAL DISTENSION [None]
  - INJECTION SITE WARMTH [None]
  - INJECTION SITE SWELLING [None]
  - INJECTION SITE ERYTHEMA [None]
  - INJECTION SITE PAIN [None]
